FAERS Safety Report 25502327 (Version 1)
Quarter: 2025Q3

REPORT INFORMATION
  Report Type: Spontaneous
  Country: EU (occurrence: EU)
  Receive Date: 20250702
  Receipt Date: 20250702
  Transmission Date: 20251020
  Serious: Yes (Other)
  Sender: SAMSUNG BIOEPIS
  Company Number: None

PATIENT
  Age: 49 Year
  Sex: Female
  Weight: 47 kg

DRUGS (1)
  1. ETANERCEPT [Suspect]
     Active Substance: ETANERCEPT
     Indication: Psoriatic arthropathy
     Dosage: 50 MG 1 VIAL SUBCUTANEOUSLY PER WEEK;
     Route: 058
     Dates: start: 20250114, end: 20250417

REACTIONS (5)
  - Arrhythmia [Not Recovered/Not Resolved]
  - Asthenia [Recovering/Resolving]
  - Headache [Recovering/Resolving]
  - Pyrexia [Recovered/Resolved]
  - Rash [Recovering/Resolving]

NARRATIVE: CASE EVENT DATE: 20250307
